FAERS Safety Report 6537610-1 (Version None)
Quarter: 2010Q1

REPORT INFORMATION
  Report Type: 
  Country: None (occurrence: None)
  Receive Date: 20100114
  Receipt Date: 20100112
  Transmission Date: 20100710
  Serious: Yes (Other)
  Sender: FDA-Public Use
  Company Number: A0838994A

PATIENT
  Sex: Male

DRUGS (1)
  1. LOVAZA [Suspect]
     Route: 065

REACTIONS (1)
  - COLITIS [None]
